FAERS Safety Report 4969436-4 (Version None)
Quarter: 2006Q2

REPORT INFORMATION
  Report Type: 
  Country: None (occurrence: None)
  Receive Date: 20060411
  Receipt Date: 20060330
  Transmission Date: 20061013
  Serious: Yes (Hospitalization)
  Sender: FDA-Public Use
  Company Number: FR-BRISTOL-MYERS SQUIBB COMPANY-13335625

PATIENT
  Age: 81 Year
  Sex: Male

DRUGS (10)
  1. VASTEN TABS 40 MG [Suspect]
     Route: 048
  2. SPECIAFOLDINE [Suspect]
     Route: 048
     Dates: end: 20060208
  3. LASILIX [Suspect]
     Route: 048
  4. CALCIDIA [Suspect]
     Route: 048
  5. CLARITIN [Suspect]
     Route: 048
     Dates: end: 20060201
  6. MOPRAL [Suspect]
     Route: 048
     Dates: end: 20060201
  7. SERESTA [Concomitant]
     Route: 048
  8. VENOFER [Concomitant]
     Indication: DIALYSIS
     Route: 042
  9. NEORECORMON [Concomitant]
     Indication: DIALYSIS
  10. UN-ALFA [Concomitant]
     Indication: DIALYSIS

REACTIONS (1)
  - THROMBOCYTOPENIA [None]
